FAERS Safety Report 8378694-8 (Version None)
Quarter: 2012Q2

REPORT INFORMATION
  Report Type: 
  Country: None (occurrence: None)
  Receive Date: 20120522
  Receipt Date: 20120514
  Transmission Date: 20120825
  Serious: Yes (Hospitalization)
  Sender: FDA-Public Use
  Company Number: JP-MERCK-1204USA00724

PATIENT
  Age: 75 Year
  Sex: Male

DRUGS (5)
  1. COTRIM [Suspect]
     Route: 048
     Dates: start: 20100101
  2. NEORAL [Suspect]
     Route: 048
     Dates: start: 20100101
  3. PREDNISOLONE [Concomitant]
     Route: 065
     Dates: start: 20100101
  4. VFEND [Suspect]
     Route: 048
  5. JANUVIA [Suspect]
     Indication: TYPE 2 DIABETES MELLITUS
     Route: 048
     Dates: start: 20100405, end: 20100509

REACTIONS (1)
  - RASH [None]
